FAERS Safety Report 9933456 (Version 2)
Quarter: 2014Q1

REPORT INFORMATION
  Report Type: Spontaneous
  Country: US (occurrence: US)
  Receive Date: 20140228
  Receipt Date: 20140228
  Transmission Date: 20141002
  Serious: No
  Sender: FDA-Public Use
  Company Number: US-MYLANLABS-2013S1021002

PATIENT
  Age: 18 Year
  Sex: Male
  Weight: 67.13 kg

DRUGS (3)
  1. AMNESTEEM CAPSULES [Suspect]
     Indication: ACNE
     Route: 048
     Dates: start: 20130516, end: 20130715
  2. AMNESTEEM CAPSULES [Suspect]
     Indication: ACNE
     Dosage: 10MG QAM, 20MG HS
     Route: 048
     Dates: start: 20130715, end: 20130812
  3. AMNESTEEM CAPSULES [Suspect]
     Indication: ACNE
     Route: 048
     Dates: start: 20130812, end: 20130916

REACTIONS (6)
  - Low density lipoprotein increased [Not Recovered/Not Resolved]
  - Blood cholesterol increased [Not Recovered/Not Resolved]
  - High density lipoprotein decreased [Not Recovered/Not Resolved]
  - Blood triglycerides increased [Not Recovered/Not Resolved]
  - Blood triglycerides decreased [Not Recovered/Not Resolved]
  - Total cholesterol/HDL ratio decreased [Not Recovered/Not Resolved]
